FAERS Safety Report 7770852-6 (Version None)
Quarter: 2011Q3

REPORT INFORMATION
  Report Type: 
  Country: None (occurrence: None)
  Receive Date: 20110922
  Receipt Date: 20101118
  Transmission Date: 20111222
  Serious: No
  Sender: FDA-Public Use
  Company Number: US-ASTRAZENECA-2010SE55124

PATIENT
  Age: 54 Year
  Sex: Male
  Weight: 90.7 kg

DRUGS (11)
  1. BUSPORINE HCL [Concomitant]
     Route: 048
  2. POTASSIUM [Concomitant]
     Route: 048
  3. SEROQUEL [Suspect]
     Route: 048
  4. ATENOLOL [Concomitant]
     Route: 048
  5. SERTRALINE HYDROCHLORIDE [Concomitant]
     Route: 048
  6. SEROQUEL [Suspect]
     Indication: DEPRESSION
     Route: 048
     Dates: end: 20101101
  7. CLONAZEPAM [Concomitant]
     Route: 048
  8. LAMOTRIGINE [Concomitant]
     Route: 048
  9. ASPIRIN [Concomitant]
     Route: 048
  10. SEROQUEL [Suspect]
     Indication: ANXIETY
     Route: 048
     Dates: end: 20101101
  11. SEROQUEL [Suspect]
     Route: 048

REACTIONS (7)
  - NIGHT SWEATS [None]
  - ANGER [None]
  - INCORRECT DOSE ADMINISTERED [None]
  - DISORIENTATION [None]
  - DRUG DOSE OMISSION [None]
  - VOMITING [None]
  - INSOMNIA [None]
